FAERS Safety Report 7268694-3 (Version None)
Quarter: 2011Q1

REPORT INFORMATION
  Report Type: 
  Country: None (occurrence: None)
  Receive Date: 20110201
  Receipt Date: 20110121
  Transmission Date: 20110831
  Serious: Yes (Other)
  Sender: FDA-Public Use
  Company Number: CA-JNJFOC-20110106380

PATIENT
  Sex: Female

DRUGS (1)
  1. SIMPONI [Suspect]
     Indication: BEHCET'S SYNDROME
     Dosage: DRUG STOPPED MAY/JUNE 2010
     Route: 058

REACTIONS (2)
  - OFF LABEL USE [None]
  - CENTRAL NERVOUS SYSTEM LESION [None]
